FAERS Safety Report 9011165 (Version 2)
Quarter: 2013Q1

REPORT INFORMATION
  Report Type: Spontaneous
  Country: US (occurrence: US)
  Receive Date: 20130109
  Receipt Date: 20130117
  Transmission Date: 20140127
  Serious: Yes (Other)
  Sender: FDA-Public Use
  Company Number: US-BAYER-2013-002699

PATIENT
  Age: 73 Year
  Sex: Female
  Weight: 63.49 kg

DRUGS (3)
  1. BAYER AM EXTRA STENGTH [Suspect]
     Indication: ARTHRITIS
     Dosage: 1 DF, PRN
     Route: 048
     Dates: start: 201212, end: 201212
  2. HYDROCHLOROTHIAZIDE [Concomitant]
  3. METOPROLOL [Concomitant]

REACTIONS (5)
  - Throat tightness [Recovered/Resolved]
  - Dyspnoea [None]
  - Foreign body [Recovered/Resolved]
  - Expired drug administered [Recovered/Resolved]
  - Oropharyngeal pain [None]
